FAERS Safety Report 4932695-8 (Version None)
Quarter: 2006Q1

REPORT INFORMATION
  Report Type: 
  Country: None (occurrence: None)
  Receive Date: 20060301
  Receipt Date: 20060213
  Transmission Date: 20060701
  Serious: Yes (Other)
  Sender: FDA-Public Use
  Company Number: 8015032

PATIENT
  Age: 69 Year
  Sex: Male

DRUGS (1)
  1. DELSYM [Suspect]
     Indication: COUGH
     Dosage: 10 ML ONCE PO
     Route: 048
     Dates: start: 20060131, end: 20060131

REACTIONS (1)
  - CARDIAC FAILURE CONGESTIVE [None]
